FAERS Safety Report 5486544-2 (Version None)
Quarter: 2007Q3

REPORT INFORMATION
  Report Type: 
  Country: None (occurrence: None)
  Receive Date: 20070919
  Receipt Date: 20070518
  Transmission Date: 20080115
  Serious: No
  Sender: FDA-Public Use
  Company Number: 2007RL000222

PATIENT
  Sex: Female
  Weight: 63.9572 kg

DRUGS (2)
  1. OMACOR [Suspect]
     Indication: BLOOD CHOLESTEROL
     Dosage: 2 GM; QD; PO
     Route: 048
     Dates: start: 20070201
  2. ASPIRIN [Concomitant]

REACTIONS (2)
  - GINGIVAL BLEEDING [None]
  - OFF LABEL USE [None]
